FAERS Safety Report 7586434-5 (Version None)
Quarter: 2011Q3

REPORT INFORMATION
  Report Type: 
  Country: None (occurrence: None)
  Receive Date: 20110701
  Receipt Date: 20110624
  Transmission Date: 20111222
  Serious: Yes (Hospitalization)
  Sender: FDA-Public Use
  Company Number: B0728459A

PATIENT
  Age: 58 Year
  Sex: Male

DRUGS (4)
  1. SUMATRIPTAN SUCCINATE [Suspect]
     Indication: MIGRAINE
     Dosage: 1UNIT WEEKLY
     Route: 058
  2. ZOLMITRIPTAN [Suspect]
     Indication: MIGRAINE
     Dosage: 1UNIT PER DAY
     Route: 048
  3. INDOCIN [Suspect]
     Indication: MIGRAINE
     Dosage: 2UNIT SINGLE DOSE
     Route: 054
  4. ERGOTAMINE TARTRATE AND CAFFEINE [Suspect]
     Indication: MIGRAINE
     Dosage: 2UNIT PER DAY
     Route: 048

REACTIONS (3)
  - DRUG ABUSE [None]
  - HEADACHE [None]
  - MIGRAINE [None]
